FAERS Safety Report 5339152-8 (Version None)
Quarter: 2007Q2

REPORT INFORMATION
  Report Type: 
  Country: None (occurrence: None)
  Receive Date: 20070530
  Receipt Date: 20070524
  Transmission Date: 20071010
  Serious: Yes (Life-Threatening, Hospitalization)
  Sender: FDA-Public Use
  Company Number: JP-BOEHRINGER INGELHEIM PHARMACEUTICALS, INC.-2007-BP-06399NB

PATIENT
  Sex: Female
  Weight: 73 kg

DRUGS (5)
  1. MICARDIS [Suspect]
     Indication: HYPERTENSION
     Route: 048
     Dates: start: 20060826
  2. INDERAL LA [Concomitant]
     Indication: HYPERTENSION
     Route: 048
     Dates: end: 20070207
  3. THYRADIN S [Concomitant]
     Indication: HYPOTHYROIDISM
     Route: 048
  4. SIMVASTATIN [Concomitant]
     Indication: HYPERLIPIDAEMIA
     Route: 048
  5. DIBETOS B [Concomitant]
     Indication: DIABETES MELLITUS
     Route: 048
     Dates: start: 20060210

REACTIONS (1)
  - CEREBRAL HAEMORRHAGE [None]
